FAERS Safety Report 25155595 (Version 1)
Quarter: 2025Q2

REPORT INFORMATION
  Report Type: Spontaneous
  Country: ES (occurrence: ES)
  Receive Date: 20250403
  Receipt Date: 20250403
  Transmission Date: 20250716
  Serious: Yes (Hospitalization)
  Sender: ELI LILLY AND CO
  Company Number: ES-ELI_LILLY_AND_COMPANY-ES202504002711

PATIENT
  Age: 17 Year
  Sex: Male

DRUGS (1)
  1. LEBRIKIZUMAB [Suspect]
     Active Substance: LEBRIKIZUMAB
     Indication: Product used for unknown indication
     Route: 058

REACTIONS (5)
  - Erythema [Unknown]
  - Flushing [Unknown]
  - Discomfort [Unknown]
  - Dizziness [Unknown]
  - Drug hypersensitivity [Unknown]
